FAERS Safety Report 6769953-0 (Version None)
Quarter: 2010Q2

REPORT INFORMATION
  Report Type: 
  Country: None (occurrence: None)
  Receive Date: 20100615
  Receipt Date: 20100609
  Transmission Date: 20101027
  Serious: Yes (Life-Threatening, Hospitalization)
  Sender: FDA-Public Use
  Company Number: B0659688A

PATIENT
  Sex: Female

DRUGS (8)
  1. CLAMOXYL [Suspect]
     Indication: DRUG USE FOR UNKNOWN INDICATION
     Dosage: 1G TWICE PER DAY
     Route: 048
     Dates: start: 20100518, end: 20100521
  2. CELLCEPT [Suspect]
     Indication: DRUG USE FOR UNKNOWN INDICATION
     Dosage: 1.25G TWICE PER DAY
     Route: 048
     Dates: start: 20100101, end: 20100525
  3. NEXIUM [Suspect]
     Indication: DRUG USE FOR UNKNOWN INDICATION
     Dosage: 40MG PER DAY
     Route: 048
     Dates: end: 20100525
  4. TRIATEC [Suspect]
     Indication: DRUG USE FOR UNKNOWN INDICATION
     Dosage: 5MG PER DAY
     Route: 048
     Dates: start: 20080201, end: 20100525
  5. NEORAL [Concomitant]
     Dosage: 100MG TWICE PER DAY
     Route: 048
     Dates: start: 20100101
  6. PREVISCAN [Concomitant]
     Dosage: 30MG PER DAY
     Route: 048
     Dates: start: 20100215
  7. NEORECORMON [Concomitant]
     Dosage: 10000IU TWO TIMES PER WEEK
     Route: 058
     Dates: start: 20100201, end: 20100506
  8. PRAVASTATIN SODIUM [Concomitant]
     Dosage: 20MG PER DAY
     Route: 048
     Dates: start: 20080201

REACTIONS (6)
  - AGRANULOCYTOSIS [None]
  - BLAST CELL COUNT INCREASED [None]
  - GRANULOCYTES MATURATION ARREST [None]
  - LYMPHOPENIA [None]
  - NEUTROPENIA [None]
  - PYREXIA [None]
